FAERS Safety Report 21043770 (Version 1)
Quarter: 2022Q3

REPORT INFORMATION
  Report Type: Spontaneous
  Country: US (occurrence: None)
  Receive Date: 20220701
  Receipt Date: 20220701
  Transmission Date: 20221027
  Serious: Yes (Other)
  Sender: FDA-Public Use
  Company Number: None

PATIENT
  Age: 5 Year
  Sex: Male
  Weight: 21.15 kg

DRUGS (2)
  1. CEFDINIR [Suspect]
     Active Substance: CEFDINIR
  2. FLOVENT [Concomitant]
     Active Substance: FLUTICASONE PROPIONATE

REACTIONS (1)
  - Haemangioma [None]

NARRATIVE: CASE EVENT DATE: 20220701
